FAERS Safety Report 20402040 (Version 2)
Quarter: 2022Q1

REPORT INFORMATION
  Report Type: Spontaneous
  Country: US (occurrence: US)
  Receive Date: 20220131
  Receipt Date: 20220201
  Transmission Date: 20220424
  Serious: Yes (Hospitalization, Other)
  Sender: FDA-Public Use
  Company Number: US-ABBVIE-21K-163-4204226-00

PATIENT

DRUGS (1)
  1. HUMIRA [Suspect]
     Active Substance: ADALIMUMAB
     Indication: Product used for unknown indication
     Route: 058

REACTIONS (10)
  - Injury [Unknown]
  - Herpes zoster meningitis [Unknown]
  - Meningitis aseptic [Unknown]
  - Lyme disease [Unknown]
  - Immunodeficiency [Unknown]
  - Impaired work ability [Unknown]
  - Migraine [Unknown]
  - Injury [Unknown]
  - Adverse drug reaction [Unknown]
  - Psoriasis [Unknown]

NARRATIVE: CASE EVENT DATE: 20120101
